FAERS Safety Report 7552162-5 (Version None)
Quarter: 2011Q2

REPORT INFORMATION
  Report Type: 
  Country: None (occurrence: None)
  Receive Date: 20110616
  Receipt Date: 20031031
  Transmission Date: 20111010
  Serious: Yes (Hospitalization)
  Sender: FDA-Public Use
  Company Number: PHBS2003BR14639

PATIENT
  Age: 60 Year
  Sex: Female
  Weight: 78 kg

DRUGS (1)
  1. LESCOL XL [Suspect]
     Dosage: 80 MG, QD
     Route: 048

REACTIONS (1)
  - DIABETES MELLITUS [None]
